FAERS Safety Report 8817939 (Version 1)
Quarter: 2012Q4

REPORT INFORMATION
  Report Type: 
  Country: US (occurrence: US)
  Receive Date: 20121001
  Receipt Date: 20121001
  Transmission Date: 20130627
  Serious: No
  Sender: FDA-Public Use
  Company Number: US-SANOFI-AVENTIS-2012SA035536

PATIENT
  Age: 88 Year
  Sex: Male

DRUGS (4)
  1. ELIGARD [Suspect]
     Indication: PROSTATE CANCER
     Route: 058
  2. ELIGARD [Suspect]
     Indication: PROSTATE CANCER
     Route: 058
  3. ELIGARD [Suspect]
     Indication: PROSTATE CANCER
     Route: 058
  4. ELIGARD [Suspect]
     Indication: PROSTATE CANCER
     Route: 058
     Dates: start: 20120502, end: 20120502

REACTIONS (3)
  - Injection site nodule [Not Recovered/Not Resolved]
  - Injection site scab [Not Recovered/Not Resolved]
  - Injection site reaction [Not Recovered/Not Resolved]
